FAERS Safety Report 20891324 (Version 1)
Quarter: 2022Q2

REPORT INFORMATION
  Report Type: Other
  Country: CA (occurrence: CA)
  Receive Date: 20220530
  Receipt Date: 20220530
  Transmission Date: 20220721
  Serious: Yes (Other)
  Sender: FDA-Public Use
  Company Number: CA-APOTEX-2022AP008421

PATIENT
  Age: 69 Year
  Sex: Male
  Weight: 84 kg

DRUGS (1)
  1. ROSUVASTATIN [Suspect]
     Active Substance: ROSUVASTATIN
     Indication: Cardiac disorder
     Dosage: 20 MILLIGRAM, QD
     Route: 048

REACTIONS (3)
  - Dermatitis [Unknown]
  - Rash erythematous [Unknown]
  - Skin exfoliation [Unknown]
